FAERS Safety Report 24979739 (Version 1)
Quarter: 2025Q1

REPORT INFORMATION
  Report Type: Spontaneous
  Country: KR (occurrence: KR)
  Receive Date: 20250218
  Receipt Date: 20250218
  Transmission Date: 20250408
  Serious: Yes (Other)
  Sender: RANBAXY
  Company Number: KR-SUN PHARMACEUTICAL INDUSTRIES LTD-2025RR-490413

PATIENT
  Age: 64 Year
  Sex: Female

DRUGS (2)
  1. NOREPINEPHRINE BITARTRATE [Suspect]
     Active Substance: NOREPINEPHRINE BITARTRATE
     Indication: Blood pressure management
     Route: 065
  2. VASOPRESSIN [Suspect]
     Active Substance: VASOPRESSIN
     Indication: Cardiac output
     Route: 065

REACTIONS (1)
  - Tissue injury [Recovered/Resolved]
